FAERS Safety Report 8592892 (Version 3)
Quarter: 2014Q2

REPORT INFORMATION
  Report Type: Spontaneous
  Country: US (occurrence: US)
  Receive Date: 20120604
  Receipt Date: 20140404
  Transmission Date: 20141212
  Serious: Yes (Other)
  Sender: FDA-Public Use
  Company Number: US-ASTRAZENECA-2012SE34785

PATIENT
  Sex: Male

DRUGS (11)
  1. NEXIUM [Suspect]
     Indication: DYSPEPSIA
     Route: 048
     Dates: start: 2000, end: 2007
  2. NEXIUM [Suspect]
     Indication: DYSPEPSIA
     Route: 048
     Dates: start: 20090103
  3. PROTONIX [Concomitant]
  4. ZANTAC [Concomitant]
  5. LISINOPRIL [Concomitant]
     Dates: start: 20090201
  6. SEROQUEL [Concomitant]
     Dates: start: 20090103
  7. OXCARBAZEPINE [Concomitant]
     Dates: start: 20090102
  8. TRAZADONE [Concomitant]
     Dates: start: 20080305
  9. HYDROCODONE-ACETAMINOPHEN [Concomitant]
     Dosage: 5-500
     Dates: start: 20070529
  10. PROPRANOLOL [Concomitant]
     Dates: start: 20090102
  11. FLUOXETIN HCL [Concomitant]
     Dates: start: 20090602

REACTIONS (11)
  - Arthropathy [Unknown]
  - Carpal tunnel syndrome [Unknown]
  - Osteoporosis [Unknown]
  - Multiple fractures [Unknown]
  - Bone disorder [Unknown]
  - Calcium deficiency [Unknown]
  - Arthritis [Unknown]
  - Hypertension [Unknown]
  - Bone pain [Unknown]
  - Headache [Unknown]
  - Malaise [Unknown]
